FAERS Safety Report 4649567-9 (Version None)
Quarter: 2005Q2

REPORT INFORMATION
  Report Type: 
  Country: None (occurrence: None)
  Receive Date: 20050502
  Receipt Date: 20050420
  Transmission Date: 20051028
  Serious: Yes (Hospitalization)
  Sender: FDA-Public Use
  Company Number: US-BOEHRINGER INGELHEIM PHARMACEUTICALS, INC.-2005-BP-06474BP

PATIENT
  Sex: Female

DRUGS (15)
  1. SPIRIVA [Suspect]
     Indication: CHRONIC OBSTRUCTIVE PULMONARY DISEASE
     Route: 055
     Dates: start: 20040601
  2. NITROGLYCERIN [Concomitant]
     Indication: CARDIAC FAILURE CONGESTIVE
  3. DIGOXIN [Concomitant]
     Indication: CARDIAC FAILURE CONGESTIVE
  4. PREDNISONE [Concomitant]
     Indication: CHRONIC OBSTRUCTIVE PULMONARY DISEASE
  5. NORVASC [Concomitant]
     Indication: HYPERTENSION
  6. ACTONEL [Concomitant]
     Indication: OSTEOPOROSIS
  7. LASIX [Concomitant]
     Indication: CARDIAC FAILURE CONGESTIVE
  8. DOCUSATE [Concomitant]
     Indication: CONSTIPATION
  9. MIRALAX [Concomitant]
     Indication: CONSTIPATION
  10. MUCINEX [Concomitant]
     Indication: CHEST DISCOMFORT
  11. NEXIUM [Concomitant]
     Indication: GASTROOESOPHAGEAL REFLUX DISEASE
  12. POTASSIUM CHLORIDE [Concomitant]
     Indication: MINERAL SUPPLEMENTATION
  13. COUMADIN [Concomitant]
     Indication: ATRIAL FIBRILLATION
  14. ALBUTEROL [Concomitant]
     Indication: CHRONIC OBSTRUCTIVE PULMONARY DISEASE
  15. ADVAIR DISKUS 100/50 [Concomitant]
     Indication: CHRONIC OBSTRUCTIVE PULMONARY DISEASE

REACTIONS (1)
  - PNEUMONIA [None]
